FAERS Safety Report 5825043-2 (Version None)
Quarter: 2008Q3

REPORT INFORMATION
  Report Type: 
  Country: None (occurrence: None)
  Receive Date: 20080729
  Receipt Date: 20080722
  Transmission Date: 20090109
  Serious: Yes (Other)
  Sender: FDA-Public Use
  Company Number: DE-ALLERGAN-0808980US

PATIENT
  Sex: Female

DRUGS (4)
  1. ALPHAGAN [Suspect]
     Indication: GLAUCOMA
     Dosage: 1 GTT, BID
     Route: 047
     Dates: start: 20080414, end: 20080501
  2. ALPHAGAN [Suspect]
     Dosage: UNK, UNKNOWN
     Route: 047
     Dates: end: 20070901
  3. LUMIGAN [Concomitant]
     Indication: GLAUCOMA
     Route: 047
  4. COSOPT [Concomitant]
     Indication: GLAUCOMA
     Route: 047

REACTIONS (2)
  - DIZZINESS [None]
  - INJURY [None]
